FAERS Safety Report 6726897-8 (Version None)
Quarter: 2010Q2

REPORT INFORMATION
  Report Type: 
  Country: None (occurrence: None)
  Receive Date: 20100517
  Receipt Date: 20100507
  Transmission Date: 20101027
  Serious: Yes (Hospitalization)
  Sender: FDA-Public Use
  Company Number: BR-BIOGENIDEC-2010BI015947

PATIENT
  Age: 31 Year
  Sex: Female

DRUGS (3)
  1. AVONEX [Suspect]
     Indication: MULTIPLE SCLEROSIS
     Dates: start: 20090513
  2. PANTOPRAZOLE [Concomitant]
     Indication: PROPHYLAXIS
  3. AZATHIOPRINE [Concomitant]

REACTIONS (4)
  - BONE PAIN [None]
  - CONSTIPATION [None]
  - PARAESTHESIA [None]
  - SENSATION OF HEAVINESS [None]
